FAERS Safety Report 8133789-9 (Version None)
Quarter: 2012Q1

REPORT INFORMATION
  Report Type: 
  Country: None (occurrence: None)
  Receive Date: 20120213
  Receipt Date: 20120213
  Transmission Date: 20120608
  Serious: No
  Sender: FDA-Public Use
  Company Number: None

PATIENT
  Age: 42 Year
  Sex: Female
  Weight: 61.688 kg

DRUGS (1)
  1. NORGESTREL/ETHINYL ESTRADIOL [Suspect]
     Route: 048

REACTIONS (4)
  - AMENORRHOEA [None]
  - HEADACHE [None]
  - PRODUCT QUALITY ISSUE [None]
  - BACK PAIN [None]
